FAERS Safety Report 6729931-4 (Version None)
Quarter: 2010Q2

REPORT INFORMATION
  Report Type: 
  Country: None (occurrence: None)
  Receive Date: 20100513
  Receipt Date: 20100430
  Transmission Date: 20101027
  Serious: Yes (Hospitalization)
  Sender: FDA-Public Use
  Company Number: DSA_43069_2010

PATIENT
  Age: 50 Year
  Sex: Male

DRUGS (3)
  1. ELONTRIL (ELONTRIL - BUPROPION HYDROCHLORIDE EXTENDED RELEASE ) (NOT S [Suspect]
     Indication: DEPRESSION
     Dosage: (300 MG EVERY MORNING ORAL)
     Route: 048
  2. TRAZODONE /00447702/ (TRAZODON- TRAZODONE HYDROCHLORIDE) (NOT SPECIFIE [Suspect]
     Indication: DEPRESSION
     Dosage: (1 DF ORAL)
     Route: 048
  3. ANALGESICS (ANALGESICS UNKNOWN) [Suspect]
     Indication: PROCEDURAL PAIN
     Dosage: (DF)

REACTIONS (2)
  - DRUG INTERACTION [None]
  - HYPOTENSIVE ANAESTHESIA PROCEDURE [None]
